FAERS Safety Report 18437320 (Version 4)
Quarter: 2021Q1

REPORT INFORMATION
  Report Type: Report from Study
  Country: FR (occurrence: FR)
  Receive Date: 20201028
  Receipt Date: 20210201
  Transmission Date: 20210419
  Serious: Yes (Death, Hospitalization, Other)
  Sender: FDA-Public Use
  Company Number: NVSC2020FR280609

PATIENT
  Age: 69 Year
  Sex: Male
  Weight: 80.5 kg

DRUGS (16)
  1. ADOPORT [Suspect]
     Active Substance: TACROLIMUS
     Dosage: 2 (MG/J)
     Route: 065
     Dates: start: 20201015
  2. ADOPORT [Suspect]
     Active Substance: TACROLIMUS
     Dosage: 1 MG
     Route: 048
     Dates: start: 20200925
  3. ADOPORT [Suspect]
     Active Substance: TACROLIMUS
     Dosage: 10 (MG/J)
     Route: 065
     Dates: start: 20200930
  4. ADOPORT [Suspect]
     Active Substance: TACROLIMUS
     Dosage: 1 (MG/J)
     Route: 065
     Dates: start: 20201016
  5. ADOPORT [Suspect]
     Active Substance: TACROLIMUS
     Indication: RENAL TRANSPLANT
     Dosage: 1 (1MG/J)
     Route: 065
     Dates: start: 20200908, end: 20200928
  6. ADOPORT [Suspect]
     Active Substance: TACROLIMUS
     Dosage: 8 (MG/J)
     Route: 065
     Dates: start: 20201002
  7. ADOPORT [Suspect]
     Active Substance: TACROLIMUS
     Dosage: 2 (MG/J)
     Route: 065
     Dates: start: 20201018
  8. BACTIN [Concomitant]
     Indication: PRODUCT USED FOR UNKNOWN INDICATION
     Dosage: UNK
     Route: 065
  9. ADOPORT [Suspect]
     Active Substance: TACROLIMUS
     Dosage: 10 MG
     Route: 048
     Dates: start: 20200925
  10. ADOPORT [Suspect]
     Active Substance: TACROLIMUS
     Dosage: 4 (4MG/J)
     Route: 065
     Dates: start: 20201008
  11. ADOPORT [Suspect]
     Active Substance: TACROLIMUS
     Dosage: 2 (2 MG/J)
     Route: 065
     Dates: start: 20201013
  12. ADOPORT [Suspect]
     Active Substance: TACROLIMUS
     Dosage: 8 (8 MG/J)
     Route: 065
     Dates: start: 20200928
  13. ADOPORT [Suspect]
     Active Substance: TACROLIMUS
     Dosage: 1 (MG/J)
     Route: 065
     Dates: start: 20201017
  14. VALGANCICLOVIR. [Concomitant]
     Active Substance: VALGANCICLOVIR
     Indication: PRODUCT USED FOR UNKNOWN INDICATION
     Dosage: UNK
     Route: 065
  15. ADOPORT [Suspect]
     Active Substance: TACROLIMUS
     Dosage: 2 MG
     Route: 048
     Dates: start: 20200926
  16. ADOPORT [Suspect]
     Active Substance: TACROLIMUS
     Dosage: UNK
     Route: 065
     Dates: start: 20201014

REACTIONS (18)
  - COVID-19 pneumonia [Fatal]
  - Pyrexia [Unknown]
  - Myalgia [Unknown]
  - Eye pruritus [Unknown]
  - Candida test positive [Recovering/Resolving]
  - Drug interaction [Unknown]
  - Renal failure [Fatal]
  - Dyspnoea [Unknown]
  - Cardio-respiratory arrest [Recovered/Resolved]
  - Immunosuppressant drug level increased [Unknown]
  - Neurological examination abnormal [Fatal]
  - Hypoxia [Fatal]
  - Chest pain [Unknown]
  - Pleural effusion [Unknown]
  - Oxygen saturation decreased [Fatal]
  - Delayed graft function [Recovered/Resolved]
  - Respiratory failure [Unknown]
  - Microalbuminuria [Fatal]

NARRATIVE: CASE EVENT DATE: 20200925
